FAERS Safety Report 10168366 (Version 1)
Quarter: 2014Q2

REPORT INFORMATION
  Report Type: Spontaneous
  Country: RO (occurrence: RO)
  Receive Date: 20140513
  Receipt Date: 20140513
  Transmission Date: 20141212
  Serious: Yes (Hospitalization)
  Sender: FDA-Public Use
  Company Number: PHHY2014RO055291

PATIENT
  Age: 51 Year
  Sex: Male

DRUGS (1)
  1. THIAMAZOLE [Suspect]
     Indication: HYPERTHYROIDISM
     Dosage: 30 MG, PER DAY

REACTIONS (6)
  - Haemolytic anaemia [Unknown]
  - Arthralgia [Unknown]
  - Pruritus [Unknown]
  - Jaundice [Unknown]
  - Rash macular [Unknown]
  - Hepatomegaly [Unknown]
